FAERS Safety Report 9479614 (Version 29)
Quarter: 2021Q2

REPORT INFORMATION
  Report Type: Report from Study
  Country: CA (occurrence: CA)
  Receive Date: 20130827
  Receipt Date: 20210628
  Transmission Date: 20210717
  Serious: Yes (Other)
  Sender: FDA-Public Use
  Company Number: PHHY2009CA17708

PATIENT
  Age: 48 Year
  Sex: Female

DRUGS (3)
  1. SANDOSTATIN LAR DEPOT [Suspect]
     Active Substance: OCTREOTIDE ACETATE
     Indication: CARCINOID TUMOUR
     Dosage: 30 MG, Q4W (EVERY 4 WEEKS)
     Route: 030
     Dates: start: 20081023
  2. SANDOSTATIN LAR DEPOT [Suspect]
     Active Substance: OCTREOTIDE ACETATE
     Dosage: 30 MG, Q4W (EVERY 4 WEEKS)
     Route: 030
     Dates: start: 20081023
  3. SANDOSTATIN LAR DEPOT [Suspect]
     Active Substance: OCTREOTIDE ACETATE

REACTIONS (14)
  - Discomfort [Unknown]
  - Fatigue [Unknown]
  - Diarrhoea [Unknown]
  - Neoplasm [Unknown]
  - Pain [Unknown]
  - Urinary tract infection [Unknown]
  - Blood pressure increased [Unknown]
  - Arthralgia [Unknown]
  - Asthenia [Unknown]
  - Nausea [Unknown]
  - Body temperature decreased [Unknown]
  - Hot flush [Unknown]
  - Influenza like illness [Unknown]
  - Needle issue [Unknown]

NARRATIVE: CASE EVENT DATE: 20130822
